FAERS Safety Report 20278439 (Version 1)
Quarter: 2022Q1

REPORT INFORMATION
  Report Type: Spontaneous
  Country: US (occurrence: US)
  Receive Date: 20220103
  Receipt Date: 20220103
  Transmission Date: 20220424
  Serious: No
  Sender: FDA-Public Use
  Company Number: US-SANOFI-00903967

PATIENT
  Sex: Male

DRUGS (5)
  1. SELSUN BLUE MEDICATED [Suspect]
     Active Substance: SELENIUM SULFIDE
     Indication: Dandruff
  2. SELSUN BLUE MEDICATED [Suspect]
     Active Substance: SELENIUM SULFIDE
     Indication: Hair texture abnormal
  3. SELSUN BLUE MOISTURIZING TREATMENT ANTI-DAND. [Concomitant]
  4. SELSUN BLUE ITCHY DRY SCALP [Concomitant]
     Active Substance: PYRITHIONE ZINC
  5. SELENIUM SULFIDE [Concomitant]
     Active Substance: SELENIUM SULFIDE
     Indication: Dandruff

REACTIONS (5)
  - Skin exfoliation [Unknown]
  - Dry skin [Unknown]
  - Scab [Unknown]
  - Alopecia [Unknown]
  - Dermatitis [Unknown]
